FAERS Safety Report 7639533-3 (Version None)
Quarter: 2011Q3

REPORT INFORMATION
  Report Type: 
  Country: None (occurrence: None)
  Receive Date: 20110727
  Receipt Date: 20110719
  Transmission Date: 20111222
  Serious: Yes (Death, Hospitalization)
  Sender: FDA-Public Use
  Company Number: NL-GLAXOSMITHKLINE-B0731411A

PATIENT
  Sex: Female
  Weight: 81.9 kg

DRUGS (12)
  1. PACLITAXEL [Concomitant]
  2. CARBOPLATIN [Concomitant]
  3. UNKNOWN DRUG [Concomitant]
  4. PAZOPANIB [Suspect]
     Indication: BREAST NEOPLASM
     Dosage: 400MG PER DAY
     Route: 048
     Dates: start: 20110602
  5. AMLODIPINE [Suspect]
     Indication: HYPERTENSION
     Dosage: 5MG PER DAY
     Route: 048
     Dates: start: 20110621, end: 20110630
  6. HYDROCHLOROTHIAZIDE [Concomitant]
     Indication: HYPERTENSION
     Route: 048
     Dates: start: 20101013
  7. TEMAZEPAM [Concomitant]
     Dosage: 10MG PER DAY
     Route: 048
     Dates: start: 20101013
  8. DOCETAXEL [Suspect]
     Indication: BREAST NEOPLASM
     Dosage: 50MGM2 EVERY 3 WEEKS
     Route: 042
     Dates: start: 20110601
  9. OMEPRAZOLE [Concomitant]
     Dosage: 40MG PER DAY
     Route: 048
     Dates: start: 20101013
  10. UNKNOWN MEDICATION [Concomitant]
     Route: 051
     Dates: start: 20101130, end: 20110623
  11. MOVICOLON [Concomitant]
     Route: 048
     Dates: start: 20110118, end: 20110623
  12. DEXAMETHASONE [Concomitant]
     Dosage: 8MG TWICE PER DAY
     Route: 048
     Dates: start: 20110622, end: 20110623

REACTIONS (2)
  - MALAISE [None]
  - DYSPNOEA [None]
